FAERS Safety Report 7227095-4 (Version None)
Quarter: 2011Q1

REPORT INFORMATION
  Report Type: 
  Country: None (occurrence: None)
  Receive Date: 20110111
  Receipt Date: 20110111
  Transmission Date: 20110831
  Serious: Yes (Other)
  Sender: FDA-Public Use
  Company Number: None

PATIENT
  Age: 48 Year
  Sex: Male

DRUGS (1)
  1. INTEGRILIN [Suspect]
     Indication: CORONARY ARTERIAL STENT INSERTION
     Dosage: 15CC/HR IV X 2 BOTTLES
     Route: 042
     Dates: start: 20101219

REACTIONS (2)
  - INCORRECT DRUG ADMINISTRATION RATE [None]
  - DEVICE MALFUNCTION [None]
